FAERS Safety Report 20713837 (Version 1)
Quarter: 2022Q2

REPORT INFORMATION
  Report Type: Spontaneous
  Country: None (occurrence: US)
  Receive Date: 20220415
  Receipt Date: 20220415
  Transmission Date: 20220721
  Serious: No
  Sender: FDA-Public Use
  Company Number: US-Ascent Pharmaceuticals, Inc.-2127815

PATIENT
  Age: 6 Decade

DRUGS (1)
  1. DRONABINOL [Suspect]
     Active Substance: DRONABINOL
     Indication: Product used for unknown indication
     Route: 065

REACTIONS (2)
  - Expired product administered [Unknown]
  - No adverse event [Unknown]
